FAERS Safety Report 9477919 (Version 3)
Quarter: 2013Q4

REPORT INFORMATION
  Report Type: Spontaneous
  Country: DE (occurrence: DE)
  Receive Date: 20130827
  Receipt Date: 20131108
  Transmission Date: 20140711
  Serious: Yes (Other)
  Sender: FDA-Public Use
  Company Number: DE-JNJFOC-20130813826

PATIENT
  Age: 58 Year
  Sex: Female

DRUGS (5)
  1. XARELTO [Suspect]
     Indication: PRODUCT USED FOR UNKNOWN INDICATION
     Route: 048
  2. METOPROLOL [Concomitant]
     Route: 065
  3. VALSARTAN [Concomitant]
     Route: 065
  4. HCT [Concomitant]
     Dosage: 0.500 DF, OM
     Route: 065
  5. CARMEN [Concomitant]
     Route: 065

REACTIONS (2)
  - Renal impairment [Recovered/Resolved]
  - Gamma-glutamyltransferase increased [Recovered/Resolved]
